FAERS Safety Report 5340965-7 (Version None)
Quarter: 2007Q2

REPORT INFORMATION
  Report Type: 
  Country: None (occurrence: None)
  Receive Date: 20070531
  Receipt Date: 20070517
  Transmission Date: 20071010
  Serious: Yes (Hospitalization)
  Sender: FDA-Public Use
  Company Number: 234017K07USA

PATIENT
  Age: 50 Year
  Sex: Female

DRUGS (2)
  1. REBIF [Suspect]
     Indication: MULTIPLE SCLEROSIS
     Dosage: 8.8 MCG, 3 IN 1 WEEKS, SUBCUTANEOUS
     Route: 058
     Dates: start: 20070503, end: 20070501
  2. IBUPROFEN [Concomitant]

REACTIONS (10)
  - ANAEMIA [None]
  - CHROMATURIA [None]
  - DYSPNOEA [None]
  - FEELING ABNORMAL [None]
  - FLUID RETENTION [None]
  - LIP SWELLING [None]
  - MULTIPLE SCLEROSIS [None]
  - SWOLLEN TONGUE [None]
  - URINARY RETENTION [None]
  - URINARY TRACT INFECTION [None]
